FAERS Safety Report 8493028-6 (Version None)
Quarter: 2012Q3

REPORT INFORMATION
  Report Type: 
  Country: None (occurrence: None)
  Receive Date: 20120706
  Receipt Date: 20120703
  Transmission Date: 20120928
  Serious: Yes (Death)
  Sender: FDA-Public Use
  Company Number: GR-B.I. PHARMACEUTICALS,INC./RIDGEFIELD-2012-EU-03430GB

PATIENT
  Age: 80 Year
  Sex: Male

DRUGS (5)
  1. HYTRIN [Concomitant]
     Indication: BENIGN PROSTATIC HYPERPLASIA
     Dates: end: 20120601
  2. ALLOPURINOL [Concomitant]
     Indication: GOUT
     Dates: end: 20120601
  3. PRADAXA [Suspect]
     Indication: ATRIAL FIBRILLATION
     Dosage: 220 MG
     Route: 048
     Dates: start: 20120227, end: 20120601
  4. IRBESARTAN [Concomitant]
     Indication: HYPERTENSION
     Dates: end: 20120601
  5. NEBIVOLOL HCL [Concomitant]
     Indication: HYPERTENSION
     Dates: end: 20120601

REACTIONS (1)
  - CEREBRAL HAEMORRHAGE [None]
